FAERS Safety Report 19533906 (Version 2)
Quarter: 2021Q3

REPORT INFORMATION
  Report Type: Report from Study
  Country: BR (occurrence: BR)
  Receive Date: 20210713
  Receipt Date: 20210906
  Transmission Date: 20211014
  Serious: Yes (Hospitalization, Disabling, Other)
  Sender: FDA-Public Use
  Company Number: BR-SA-2019SA355201

PATIENT
  Age: 27 Year
  Sex: Female

DRUGS (3)
  1. AMOXICILLIN. [Suspect]
     Active Substance: AMOXICILLIN
     Indication: SUSPECTED COVID-19
     Dosage: UNK
     Route: 065
     Dates: start: 202102, end: 202102
  2. ALEMTUZUMAB [Suspect]
     Active Substance: ALEMTUZUMAB
     Indication: MULTIPLE SCLEROSIS
     Dosage: 12 MG, QD
     Route: 042
     Dates: start: 20191016
  3. ALEMTUZUMAB [Suspect]
     Active Substance: ALEMTUZUMAB
     Dosage: 12 MG, QD
     Route: 042
     Dates: end: 20201023

REACTIONS (20)
  - Paraesthesia [Recovering/Resolving]
  - Suspected COVID-19 [Recovering/Resolving]
  - Multiple allergies [Recovering/Resolving]
  - Dysuria [Recovering/Resolving]
  - Deep vein thrombosis [Recovering/Resolving]
  - Pain [Recovering/Resolving]
  - Influenza [Recovered/Resolved]
  - Abdominal distension [Recovering/Resolving]
  - Thrombosis [Recovering/Resolving]
  - Anxiety [Recovering/Resolving]
  - Vomiting [Recovering/Resolving]
  - Pain [Unknown]
  - Depressive symptom [Unknown]
  - Dyspnoea [Recovering/Resolving]
  - Wheelchair user [Recovering/Resolving]
  - Peripheral swelling [Recovering/Resolving]
  - Dizziness [Recovering/Resolving]
  - Weight increased [Recovering/Resolving]
  - Nervousness [Recovering/Resolving]
  - Drug ineffective [Unknown]

NARRATIVE: CASE EVENT DATE: 20191218
